FAERS Safety Report 5967642-3 (Version None)
Quarter: 2008Q4

REPORT INFORMATION
  Report Type: 
  Country: None (occurrence: None)
  Receive Date: 20081126
  Receipt Date: 20081117
  Transmission Date: 20090506
  Serious: Yes (Hospitalization)
  Sender: FDA-Public Use
  Company Number: PHHY2008IT29039

PATIENT
  Sex: Female

DRUGS (10)
  1. TEGRETOL [Suspect]
     Indication: TEMPORAL LOBE EPILEPSY
     Dosage: 200 MG DAILY
     Route: 048
     Dates: start: 20080929, end: 20081020
  2. TEGRETOL [Suspect]
     Indication: FALL
  3. TEGRETOL [Suspect]
     Indication: LOSS OF CONSCIOUSNESS
  4. ISOPTIN [Concomitant]
     Dosage: 40 MG
     Route: 048
  5. LANOXIN [Concomitant]
     Dosage: 0.0625 MG
     Route: 048
  6. TAPAZOLE [Concomitant]
     Dosage: 5 MG
     Route: 048
  7. PANTORC [Concomitant]
     Dosage: 20 MG, ORAL
     Route: 048
  8. LASIX [Concomitant]
     Dosage: 25 MG, ORAL
  9. AUGMENTIN [Concomitant]
     Dosage: 1000 MG/20 ML + 200 MG/20 ML, I.V.
     Route: 042
  10. ALDACTONE [Concomitant]
     Dosage: 25 MG, ORAL
     Route: 048

REACTIONS (1)
  - HYPOKINESIA [None]
